FAERS Safety Report 18292808 (Version 1)
Quarter: 2020Q3

REPORT INFORMATION
  Report Type: Spontaneous
  Country: GB (occurrence: GB)
  Receive Date: 20200922
  Receipt Date: 20200922
  Transmission Date: 20201103
  Serious: Yes (Other)
  Sender: FDA-Public Use
  Company Number: GB-ACCORD-201794

PATIENT
  Age: 66 Year
  Sex: Male

DRUGS (13)
  1. ALLOPURINOL. [Suspect]
     Active Substance: ALLOPURINOL
     Indication: GOUT
  2. VALPROIC ACID. [Suspect]
     Active Substance: VALPROIC ACID
     Indication: PRODUCT USED FOR UNKNOWN INDICATION
  3. DOCUSATE [Concomitant]
     Active Substance: DOCUSATE
  4. PHENYTOIN. [Suspect]
     Active Substance: PHENYTOIN
     Indication: POST STROKE EPILEPSY
     Dosage: NIGHT
  5. CLOBAZAM. [Suspect]
     Active Substance: CLOBAZAM
     Indication: POST STROKE EPILEPSY
     Dosage: 5MG DAILY, THEN INCREASED TO 10MG TWICE A DAY
  6. SENNA ALEXANDRINA [Concomitant]
     Active Substance: SENNA LEAF
  7. PARACETAMOL [Concomitant]
     Active Substance: ACETAMINOPHEN
  8. NYSTATIN/NYSTATIN/LIPOSOME [Concomitant]
     Active Substance: NYSTATIN
  9. HYDROXOCOBALAMIN [Concomitant]
     Active Substance: HYDROXOCOBALAMIN
  10. EZETIMIBE. [Concomitant]
     Active Substance: EZETIMIBE
  11. MOVICOL [Concomitant]
     Active Substance: POLYETHYLENE GLYCOL 3350\POTASSIUM CHLORIDE\SODIUM BICARBONATE\SODIUM CHLORIDE
  12. LEVETIRACETAM. [Suspect]
     Active Substance: LEVETIRACETAM
     Indication: POST STROKE EPILEPSY
  13. INDAPAMIDE. [Suspect]
     Active Substance: INDAPAMIDE
     Indication: BLOOD PRESSURE MEASUREMENT

REACTIONS (2)
  - Neutropenia [Recovered/Resolved]
  - Rash maculo-papular [Not Recovered/Not Resolved]
